FAERS Safety Report 14819755 (Version 2)
Quarter: 2018Q4

REPORT INFORMATION
  Report Type: Spontaneous
  Country: US (occurrence: US)
  Receive Date: 20180427
  Receipt Date: 20181017
  Transmission Date: 20190204
  Serious: Yes (Hospitalization, Other)
  Sender: FDA-Public Use
  Company Number: US-009507513-1111USA03157

PATIENT
  Sex: Female
  Weight: 64.64 kg

DRUGS (6)
  1. FOSAMAX [Suspect]
     Active Substance: ALENDRONATE SODIUM
     Indication: OSTEOPOROSIS
     Dosage: 70 MG, QW
     Route: 048
     Dates: start: 20010529, end: 200603
  2. PROLIA [Suspect]
     Active Substance: DENOSUMAB
     Indication: OSTEOPOROSIS
     Dosage: UNK
     Dates: start: 2014
  3. FOSAMAX [Suspect]
     Active Substance: ALENDRONATE SODIUM
     Indication: OSTEOPOROSIS
     Dosage: 10 MG, QD
     Route: 048
     Dates: start: 19951120, end: 200012
  4. ACTONEL [Suspect]
     Active Substance: RISEDRONATE SODIUM
     Route: 065
     Dates: start: 2003, end: 2010
  5. FOSAMAX PLUS D [Suspect]
     Active Substance: ALENDRONATE SODIUM\CHOLECALCIFEROL
     Indication: OSTEOPOROSIS
     Dosage: 70 MG, QW
     Route: 048
     Dates: start: 20060809, end: 200806
  6. BONIVA [Suspect]
     Active Substance: IBANDRONATE SODIUM
     Indication: OSTEOPOROSIS
     Dosage: 150 MG, QM
     Route: 048
     Dates: start: 20080424

REACTIONS (55)
  - Cervical dysplasia [Unknown]
  - Hyperlipidaemia [Unknown]
  - Benign breast neoplasm [Unknown]
  - Urge incontinence [Unknown]
  - Rosacea [Unknown]
  - Spinal osteoarthritis [Unknown]
  - Intervertebral disc degeneration [Unknown]
  - Balance disorder [Unknown]
  - Sleep disorder [Unknown]
  - Pollakiuria [Unknown]
  - Micturition urgency [Unknown]
  - Proteinuria [Unknown]
  - Hypertension [Unknown]
  - Abdominal pain [Recovered/Resolved]
  - Anxiety [Unknown]
  - Weight increased [Unknown]
  - Rib fracture [Unknown]
  - Contusion [Unknown]
  - Fracture nonunion [Unknown]
  - Vitamin D deficiency [Unknown]
  - Seasonal allergy [Unknown]
  - Stress urinary incontinence [Unknown]
  - Carotid artery stenosis [Unknown]
  - Herpes zoster [Unknown]
  - Body height decreased [Unknown]
  - Insomnia [Unknown]
  - Femur fracture [Unknown]
  - Infection [Unknown]
  - Hypercholesterolaemia [Unknown]
  - Renal cyst [Unknown]
  - Fall [Unknown]
  - Arthritis [Unknown]
  - Fall [Unknown]
  - Flatulence [Unknown]
  - Arthralgia [Unknown]
  - Carotid artery occlusion [Unknown]
  - Femur fracture [Unknown]
  - Gastrooesophageal reflux disease [Unknown]
  - Arthritis [Unknown]
  - Bronchitis [Unknown]
  - Urinary retention [Unknown]
  - Back pain [Unknown]
  - Hepatic cyst [Unknown]
  - Gastric ulcer [Unknown]
  - Gait disturbance [Unknown]
  - Femur fracture [Recovered/Resolved]
  - Fibrocystic breast disease [Unknown]
  - Bronchitis [Unknown]
  - Large intestinal polypectomy [Unknown]
  - Vertebral foraminal stenosis [Unknown]
  - Intervertebral disc protrusion [Unknown]
  - Synovial cyst [Unknown]
  - Bone loss [Unknown]
  - Varicose vein [Unknown]
  - Coronary artery disease [Unknown]

NARRATIVE: CASE EVENT DATE: 19990325
